FAERS Safety Report 13313750 (Version 1)
Quarter: 2017Q1

REPORT INFORMATION
  Report Type: Spontaneous
  Country: US (occurrence: US)
  Receive Date: 20170309
  Receipt Date: 20170309
  Transmission Date: 20170428
  Serious: Yes (Hospitalization)
  Sender: FDA-Public Use
  Company Number: US-PROCTER_AND_GAMBLE-GS17025069

PATIENT
  Age: 28 Year
  Sex: Male

DRUGS (1)
  1. DIPHENHYDRAMINE HCL [Suspect]
     Active Substance: DIPHENHYDRAMINE HYDROCHLORIDE
     Indication: INSOMNIA
     Dosage: UP TO 400MG NIGHTLY
     Route: 048

REACTIONS (25)
  - Hepatocellular injury [Recovered/Resolved]
  - Chromaturia [Recovered/Resolved]
  - Portal tract inflammation [Recovered/Resolved]
  - Overdose [Unknown]
  - Product use issue [Unknown]
  - Biliary tract disorder [Recovered/Resolved]
  - Hepatic necrosis [Recovered/Resolved]
  - Pyrexia [Recovered/Resolved]
  - Aspartate aminotransferase increased [Recovered/Resolved]
  - Blood bilirubin increased [Recovered/Resolved]
  - International normalised ratio increased [Recovered/Resolved]
  - Cholestasis [Recovered/Resolved]
  - Haemoglobin decreased [Recovered/Resolved]
  - Liver injury [Recovered/Resolved]
  - Hepatomegaly [Recovered/Resolved]
  - Vomiting [Recovered/Resolved]
  - Liver palpable [Recovered/Resolved]
  - Jaundice [Recovered/Resolved]
  - Hepatitis [Recovered/Resolved]
  - Coagulopathy [Recovered/Resolved]
  - Drug-induced liver injury [Recovered/Resolved]
  - Alanine aminotransferase increased [Recovered/Resolved]
  - Ocular icterus [Recovered/Resolved]
  - Bilirubin conjugated increased [Recovered/Resolved]
  - Incorrect drug administration duration [Unknown]
